FAERS Safety Report 9660817 (Version 1)
Quarter: 2013Q4

REPORT INFORMATION
  Report Type: Spontaneous
  Country: US (occurrence: US)
  Receive Date: 20131031
  Receipt Date: 20131031
  Transmission Date: 20140711
  Serious: No
  Sender: FDA-Public Use
  Company Number: US-ENDO PHARMACEUTICALS INC.-HCDA20130075

PATIENT
  Sex: Female

DRUGS (1)
  1. HYDROCODONE BITARTRATE / ACETAMINOPHEN 10MG/325MG [Suspect]
     Dosage: 10/325 MG
     Route: 048

REACTIONS (1)
  - Abdominal pain upper [Recovered/Resolved]
